FAERS Safety Report 7293130-0 (Version None)
Quarter: 2011Q1

REPORT INFORMATION
  Report Type: 
  Country: None (occurrence: None)
  Receive Date: 20110210
  Receipt Date: 20110210
  Transmission Date: 20110831
  Serious: Yes (Life-Threatening, Hospitalization)
  Sender: FDA-Public Use
  Company Number: None

PATIENT
  Age: 52 Year
  Sex: Female
  Weight: 62.1428 kg

DRUGS (1)
  1. DEPO-PROVERA [Suspect]
     Indication: MENORRHAGIA
     Dosage: 300MGS OTHER
     Route: 050

REACTIONS (13)
  - HEADACHE [None]
  - PARAESTHESIA [None]
  - MUSCULOSKELETAL STIFFNESS [None]
  - ANAEMIA [None]
  - DIZZINESS [None]
  - MUSCLE SPASMS [None]
  - PAIN IN EXTREMITY [None]
  - DYSPNOEA [None]
  - PAIN [None]
  - FATIGUE [None]
  - PALPITATIONS [None]
  - HYPOAESTHESIA [None]
  - ASTHENIA [None]
